FAERS Safety Report 6528410-7 (Version None)
Quarter: 2010Q1

REPORT INFORMATION
  Report Type: 
  Country: None (occurrence: None)
  Receive Date: 20100106
  Receipt Date: 20100104
  Transmission Date: 20100710
  Serious: Yes (Life-Threatening, Hospitalization)
  Sender: FDA-Public Use
  Company Number: A0837418A

PATIENT
  Age: 72 Year
  Sex: Female

DRUGS (14)
  1. DIGIBIND [Suspect]
     Dosage: 60MG SINGLE DOSE
     Route: 042
     Dates: start: 20091229, end: 20091229
  2. DIGOXIN [Suspect]
     Indication: ATRIAL FIBRILLATION
     Route: 065
  3. ZOFRAN [Concomitant]
  4. ASPIRIN [Concomitant]
  5. PROTONIX [Concomitant]
  6. SYNTHROID [Concomitant]
  7. CELEXA [Concomitant]
  8. ESTRADIOL [Concomitant]
  9. AMBIEN [Concomitant]
  10. XANAX [Concomitant]
  11. TRAVATAN [Concomitant]
  12. UNKNOWN MEDICATION [Concomitant]
  13. LOVASTATIN [Concomitant]
  14. AMIODARONE HCL [Concomitant]

REACTIONS (6)
  - ACCIDENTAL OVERDOSE [None]
  - BRADYCARDIA [None]
  - CARDIAC PACEMAKER INSERTION [None]
  - DRUG INEFFECTIVE [None]
  - LETHARGY [None]
  - PRODUCT QUALITY ISSUE [None]
